FAERS Safety Report 11845555 (Version 1)
Quarter: 2015Q4

REPORT INFORMATION
  Report Type: Spontaneous
  Country: US (occurrence: US)
  Receive Date: 20151217
  Receipt Date: 20151217
  Transmission Date: 20160305
  Serious: No
  Sender: FDA-Public Use
  Company Number: US-MYLANLABS-2014M1016089

PATIENT
  Sex: Female

DRUGS (1)
  1. OXYBUTYNIN CHLORIDE EXTENDED-RELEASE TABLETS USP [Suspect]
     Active Substance: OXYBUTYNIN CHLORIDE
     Indication: HYPERTONIC BLADDER
     Dosage: 10 MG, QD
     Route: 048
     Dates: start: 20141227, end: 20141227

REACTIONS (8)
  - Dizziness [Recovered/Resolved]
  - Fatigue [Recovered/Resolved]
  - Vision blurred [Recovered/Resolved]
  - Insomnia [Recovered/Resolved]
  - Asthenia [Recovered/Resolved]
  - Nasopharyngitis [Not Recovered/Not Resolved]
  - Dry mouth [Recovered/Resolved]
  - Unevaluable event [Recovered/Resolved]

NARRATIVE: CASE EVENT DATE: 20141227
